FAERS Safety Report 5569103-2 (Version None)
Quarter: 2007Q4

REPORT INFORMATION
  Report Type: 
  Country: None (occurrence: None)
  Receive Date: 20071220
  Receipt Date: 20070725
  Transmission Date: 20080405
  Serious: No
  Sender: FDA-Public Use
  Company Number: A0663985A

PATIENT
  Age: 68 Year
  Sex: Male

DRUGS (11)
  1. AVODART [Suspect]
     Indication: BENIGN PROSTATIC HYPERPLASIA
     Dosage: .5MG PER DAY
     Route: 048
     Dates: end: 20070712
  2. OMEPRAZOLE [Concomitant]
  3. ZOCOR [Concomitant]
  4. TOPROL-XL [Concomitant]
  5. HYZAAR [Concomitant]
  6. NIFEDIPINE [Concomitant]
  7. METFORMIN HCL [Concomitant]
  8. GEMFIBROZIL [Concomitant]
  9. XANAX [Concomitant]
  10. PENTOXIFYLLINE [Concomitant]
  11. GABAPENTIN [Concomitant]

REACTIONS (3)
  - GYNAECOMASTIA [None]
  - MAMMOGRAM ABNORMAL [None]
  - TENDERNESS [None]
